FAERS Safety Report 8091434-5 (Version None)
Quarter: 2012Q1

REPORT INFORMATION
  Report Type: 
  Country: None (occurrence: None)
  Receive Date: 20120129
  Receipt Date: 20111104
  Transmission Date: 20120608
  Serious: No
  Sender: FDA-Public Use
  Company Number: US-ABBOTT-11P-163-0871636-00

PATIENT
  Age: 59 Year
  Sex: Female

DRUGS (12)
  1. HUMIRA [Suspect]
     Indication: CROHN'S DISEASE
     Dates: start: 20111103, end: 20111103
  2. PRAVACHOL [Concomitant]
     Indication: PRODUCT USED FOR UNKNOWN INDICATION
     Dosage: DAILY
  3. CLONIDINE [Concomitant]
     Indication: PRODUCT USED FOR UNKNOWN INDICATION
     Route: 062
  4. RESTASIS [Concomitant]
     Indication: PRODUCT USED FOR UNKNOWN INDICATION
     Route: 031
  5. HUMIRA [Suspect]
  6. BONIVA [Concomitant]
     Indication: PRODUCT USED FOR UNKNOWN INDICATION
  7. PRINIVIL [Concomitant]
     Indication: PRODUCT USED FOR UNKNOWN INDICATION
     Dosage: DAILY
  8. TOPROL-XL [Concomitant]
     Indication: PRODUCT USED FOR UNKNOWN INDICATION
     Dosage: DAILY
  9. METHADONE HCL [Concomitant]
     Indication: PRODUCT USED FOR UNKNOWN INDICATION
  10. PENTASA [Concomitant]
     Indication: PRODUCT USED FOR UNKNOWN INDICATION
  11. NORVASC [Concomitant]
     Indication: PRODUCT USED FOR UNKNOWN INDICATION
     Dosage: DAILY
  12. NUCYNGA [Concomitant]
     Indication: PRODUCT USED FOR UNKNOWN INDICATION

REACTIONS (1)
  - PAIN [None]
